FAERS Safety Report 16646116 (Version 2)
Quarter: 2020Q3

REPORT INFORMATION
  Report Type: Spontaneous
  Country: US (occurrence: US)
  Receive Date: 20190730
  Receipt Date: 20200727
  Transmission Date: 20201102
  Serious: No
  Sender: FDA-Public Use
  Company Number: US-GLENMARK PHARMACEUTICALS-2019GMK040110

PATIENT

DRUGS (2)
  1. MUPIROCIN OINTMENT USP, 2% [Suspect]
     Active Substance: MUPIROCIN
     Indication: RHINITIS
  2. MUPIROCIN OINTMENT USP, 2% [Suspect]
     Active Substance: MUPIROCIN
     Indication: WOUND
     Dosage: UNK, BID
     Route: 045
     Dates: start: 201812

REACTIONS (7)
  - Mucosal hypertrophy [Unknown]
  - Drug ineffective for unapproved indication [Unknown]
  - Epistaxis [Not Recovered/Not Resolved]
  - Infection [Not Recovered/Not Resolved]
  - Incorrect route of product administration [Unknown]
  - Product dispensing error [Unknown]
  - Nasal dryness [Not Recovered/Not Resolved]

NARRATIVE: CASE EVENT DATE: 201812
